FAERS Safety Report 6010961-5 (Version None)
Quarter: 2008Q4

REPORT INFORMATION
  Report Type: 
  Country: None (occurrence: None)
  Receive Date: 20081218
  Receipt Date: 20081212
  Transmission Date: 20090506
  Serious: Yes (Hospitalization)
  Sender: FDA-Public Use
  Company Number: A0760951A

PATIENT
  Age: 56 Year
  Sex: Female
  Weight: 81.8 kg

DRUGS (18)
  1. AVANDIA [Suspect]
     Dosage: 8MG PER DAY
     Route: 048
     Dates: start: 20020813, end: 20021011
  2. XANAX [Concomitant]
     Dates: start: 20020801
  3. AMBIEN [Concomitant]
  4. ALLEGRA [Concomitant]
  5. ASTELIN [Concomitant]
  6. ZYRTEC [Concomitant]
  7. ADVAIR DISKUS 500/50 [Concomitant]
  8. ULTRAM [Concomitant]
  9. SKELAXIN [Concomitant]
  10. ALBUTEROL [Concomitant]
  11. DILTIAZEM [Concomitant]
  12. CATAPRES [Concomitant]
  13. LISINOPRIL [Concomitant]
  14. ACIPHEX [Concomitant]
  15. PREVACID [Concomitant]
  16. SUCRALFATE [Concomitant]
  17. REGLAN [Concomitant]
  18. AZATHIOPRINE [Concomitant]

REACTIONS (1)
  - CEREBROVASCULAR ACCIDENT [None]
